FAERS Safety Report 24781947 (Version 1)
Quarter: 2024Q4

REPORT INFORMATION
  Report Type: Spontaneous
  Country: FR (occurrence: FR)
  Receive Date: 20241227
  Receipt Date: 20241227
  Transmission Date: 20250115
  Serious: Yes (Other)
  Sender: ACCORD
  Company Number: None

PATIENT
  Age: 72 Year
  Sex: Male
  Weight: 75 kg

DRUGS (16)
  1. CARBOPLATIN [Suspect]
     Active Substance: CARBOPLATIN
     Indication: Hypopharyngeal cancer
     Dates: start: 20240111, end: 20240411
  2. DOCETAXEL [Suspect]
     Active Substance: DOCETAXEL
     Indication: Hypopharyngeal cancer
     Dates: start: 20240111, end: 20240411
  3. FLUOROURACIL [Suspect]
     Active Substance: FLUOROURACIL
     Indication: Hypopharyngeal cancer
     Dates: start: 20240111, end: 20240411
  4. LANSOPRAZOLE [Suspect]
     Active Substance: LANSOPRAZOLE
     Indication: Prophylaxis
     Dates: end: 20240731
  5. NIVOLUMAB [Suspect]
     Active Substance: NIVOLUMAB
     Indication: Hypopharyngeal cancer
     Dates: start: 20240411, end: 20240606
  6. FLECAINIDE [Concomitant]
     Active Substance: FLECAINIDE
     Dosage: STRENGTH: 100 MG
     Dates: start: 2017
  7. ATORVASTATIN [Concomitant]
     Active Substance: ATORVASTATIN
     Dates: start: 2017
  8. HYDROCORTISONE [Concomitant]
     Active Substance: HYDROCORTISONE
  9. INNOHEP [Concomitant]
     Active Substance: TINZAPARIN SODIUM
     Dates: start: 202303
  10. ALPRAZOLAM [Concomitant]
     Active Substance: ALPRAZOLAM
     Dates: start: 2017
  11. BISOPROLOL [Concomitant]
     Active Substance: BISOPROLOL
     Dates: start: 202202
  12. PERINDOPRIL [Concomitant]
     Active Substance: PERINDOPRIL
     Dates: start: 201806
  13. AMLODIPINE [Concomitant]
     Active Substance: AMLODIPINE BESYLATE
     Dates: start: 202202
  14. KARDEGIC [Concomitant]
     Active Substance: ASPIRIN DL-LYSINE
     Dosage: STRENGTH: 75 MG
     Dates: start: 2017
  15. PACLITAXEL [Concomitant]
     Active Substance: PACLITAXEL
     Dosage: 3 WEEKS/4
     Dates: start: 20240606
  16. CETUXIMAB [Concomitant]
     Active Substance: CETUXIMAB
     Dates: start: 20240606

REACTIONS (1)
  - Colitis microscopic [Recovered/Resolved]

NARRATIVE: CASE EVENT DATE: 20240401
